FAERS Safety Report 7263221-9 (Version None)
Quarter: 2011Q1

REPORT INFORMATION
  Report Type: 
  Country: None (occurrence: None)
  Receive Date: 20110130
  Receipt Date: 20101014
  Transmission Date: 20110831
  Serious: No
  Sender: FDA-Public Use
  Company Number: US-ABBOTT-10P-163-0678421-00

PATIENT
  Age: 21 Year
  Sex: Female

DRUGS (1)
  1. HUMIRA [Suspect]
     Indication: CROHN'S DISEASE
     Dates: start: 20100701

REACTIONS (7)
  - ABDOMINAL PAIN [None]
  - INJECTION SITE ERYTHEMA [None]
  - DIARRHOEA [None]
  - INJECTION SITE NODULE [None]
  - HAEMATOCHEZIA [None]
  - INJECTION SITE REACTION [None]
  - INJECTION SITE PRURITUS [None]
